FAERS Safety Report 5368903-1 (Version None)
Quarter: 2007Q2

REPORT INFORMATION
  Report Type: 
  Country: None (occurrence: None)
  Receive Date: 20070625
  Receipt Date: 20061031
  Transmission Date: 20071010
  Serious: No
  Sender: FDA-Public Use
  Company Number: US-ASTRAZENECA-2006UW21086

PATIENT
  Age: 65 Year
  Sex: Male
  Weight: 88.5 kg

DRUGS (8)
  1. CRESTOR [Suspect]
     Route: 048
     Dates: start: 20060201, end: 20061018
  2. CRESTOR [Suspect]
     Route: 048
     Dates: start: 20061019, end: 20061029
  3. CRESTOR [Suspect]
     Route: 048
     Dates: start: 20061030
  4. METOPROLOL SUCCINATE [Concomitant]
  5. LISINOPRIL [Concomitant]
  6. CLOPIDOGREL BISULFATE [Concomitant]
  7. HYDROCHLOROTHIAZIDE [Concomitant]
     Dosage: HALF OF 25 MG
  8. AVODART [Concomitant]

REACTIONS (2)
  - DIZZINESS [None]
  - FEELING ABNORMAL [None]
